FAERS Safety Report 18184876 (Version 1)
Quarter: 2020Q3

REPORT INFORMATION
  Report Type: Spontaneous
  Country: PL (occurrence: PL)
  Receive Date: 20200824
  Receipt Date: 20200824
  Transmission Date: 20201103
  Serious: Yes (Life-Threatening, Hospitalization)
  Sender: FDA-Public Use
  Company Number: PL-AUROBINDO-AUR-APL-2020-040435

PATIENT
  Age: 43 Year
  Sex: Male

DRUGS (7)
  1. CEFTRIAXONE. [Suspect]
     Active Substance: CEFTRIAXONE
     Indication: SUPERINFECTION BACTERIAL
     Dosage: 2 GRAM, ONCE A DAY
     Route: 042
  2. LINEZOLID. [Suspect]
     Active Substance: LINEZOLID
     Indication: SUPERINFECTION BACTERIAL
     Dosage: 500 MILLIGRAM, TWO TIMES A DAY
     Route: 042
  3. FUROSEMIDE. [Concomitant]
     Active Substance: FUROSEMIDE
     Indication: POLYURIA
     Dosage: UNK
     Route: 065
  4. CLARITHROMYCIN. [Suspect]
     Active Substance: CLARITHROMYCIN
     Indication: SUPERINFECTION BACTERIAL
     Dosage: 1000 MILLIGRAM, DAILY
     Route: 048
  5. MEROPENEM. [Suspect]
     Active Substance: MEROPENEM
     Indication: SUPERINFECTION BACTERIAL
     Dosage: 1 GRAM, 3 TIMES A DAY
     Route: 042
  6. NOREPINEPHRINE. [Concomitant]
     Active Substance: NOREPINEPHRINE
     Indication: SHOCK SYMPTOM
     Dosage: UNK
     Route: 042
  7. CHLOROQUINE. [Suspect]
     Active Substance: CHLOROQUINE
     Indication: PRODUCT USED FOR UNKNOWN INDICATION
     Dosage: 1000 MILLIGRAM, DAILY
     Route: 048

REACTIONS (2)
  - Drug ineffective [Unknown]
  - Therapeutic product effect incomplete [Unknown]
